FAERS Safety Report 23503399 (Version 1)
Quarter: 2024Q1

REPORT INFORMATION
  Report Type: Spontaneous
  Country: CA (occurrence: CA)
  Receive Date: 20240208
  Receipt Date: 20240208
  Transmission Date: 20240409
  Serious: Yes (Other)
  Sender: FDA-Public Use
  Company Number: CA-ABBVIE-5628737

PATIENT
  Sex: Male

DRUGS (1)
  1. BOTOX [Suspect]
     Active Substance: ONABOTULINUMTOXINA
     Indication: Hypertonic bladder
     Dosage: TIME INTERVAL: AS NECESSARY
     Route: 030
     Dates: start: 202309, end: 202309

REACTIONS (4)
  - Urinary retention [Not Recovered/Not Resolved]
  - Therapeutic product effect incomplete [Unknown]
  - Urinary straining [Unknown]
  - Prostatomegaly [Unknown]
